FAERS Safety Report 7142597-7 (Version None)
Quarter: 2010Q4

REPORT INFORMATION
  Report Type: 
  Country: None (occurrence: None)
  Receive Date: 20101207
  Receipt Date: 20101126
  Transmission Date: 20110411
  Serious: Yes (Hospitalization, Other)
  Sender: FDA-Public Use
  Company Number: DE-JNJFOC-20101109123

PATIENT
  Age: 60 Year
  Sex: Male
  Weight: 76 kg

DRUGS (14)
  1. SIMPONI [Suspect]
     Indication: PRODUCT USED FOR UNKNOWN INDICATION
     Route: 058
  2. SIMPONI [Suspect]
     Route: 058
  3. SIMPONI [Suspect]
     Route: 058
  4. SIMPONI [Suspect]
     Route: 058
  5. SIMPONI [Suspect]
     Route: 058
  6. SIMPONI [Suspect]
     Route: 058
  7. PANTOZOL [Suspect]
     Indication: PROPHYLAXIS AGAINST GASTROINTESTINAL ULCER
  8. PANTOZOL [Suspect]
  9. MTX [Concomitant]
  10. ADALIMUMAB [Concomitant]
  11. ETANERCEPT [Concomitant]
  12. DIOVAN [Concomitant]
  13. CALCIUM SANDOZ [Concomitant]
  14. FERRO SANOL [Concomitant]

REACTIONS (3)
  - CLOSTRIDIAL INFECTION [None]
  - DIARRHOEA [None]
  - PROCTITIS [None]
